FAERS Safety Report 24994817 (Version 1)
Quarter: 2025Q1

REPORT INFORMATION
  Report Type: Report from Study
  Country: US (occurrence: US)
  Receive Date: 20250221
  Receipt Date: 20250221
  Transmission Date: 20250408
  Serious: Yes (Death, Other)
  Sender: RANBAXY
  Company Number: US-SUN PHARMACEUTICAL INDUSTRIES LTD-2025R1-494782

PATIENT
  Sex: Female

DRUGS (4)
  1. DOXORUBICIN [Suspect]
     Active Substance: DOXORUBICIN
     Indication: Neoplasm
     Route: 065
  2. DOXORUBICIN [Suspect]
     Active Substance: DOXORUBICIN
     Indication: Osteomalacia
  3. GEMCITABINE [Suspect]
     Active Substance: GEMCITABINE
     Indication: Neoplasm
     Route: 065
  4. GEMCITABINE [Suspect]
     Active Substance: GEMCITABINE
     Indication: Osteomalacia

REACTIONS (2)
  - Neoplasm progression [Fatal]
  - Toxicity to various agents [Unknown]

NARRATIVE: CASE EVENT DATE: 20220401
